FAERS Safety Report 7478173-6 (Version None)
Quarter: 2011Q2

REPORT INFORMATION
  Report Type: 
  Country: None (occurrence: None)
  Receive Date: 20110513
  Receipt Date: 20110503
  Transmission Date: 20111010
  Serious: Yes (Other)
  Sender: FDA-Public Use
  Company Number: PHHY2011US05285

PATIENT
  Sex: Female
  Weight: 52.608 kg

DRUGS (2)
  1. GILENYA [Suspect]
     Dosage: 0.5 MG, QD
     Route: 048
     Dates: start: 20110118
  2. GILENYA [Suspect]
     Indication: MULTIPLE SCLEROSIS RELAPSE
     Dosage: 0.5 MG, DAILY
     Route: 048
     Dates: start: 20101117

REACTIONS (4)
  - OEDEMA PERIPHERAL [None]
  - CONJUNCTIVITIS [None]
  - CELLULITIS [None]
  - EAR INFECTION [None]
